FAERS Safety Report 20072868 (Version 2)
Quarter: 2022Q1

REPORT INFORMATION
  Report Type: Other
  Country: US (occurrence: None)
  Receive Date: 20211116
  Receipt Date: 20220326
  Transmission Date: 20220423
  Serious: Yes (Other)
  Sender: FDA-Public Use
  Company Number: US-ROCHE-2952104

PATIENT
  Sex: Male

DRUGS (2)
  1. XELODA [Suspect]
     Active Substance: CAPECITABINE
     Indication: Colorectal cancer metastatic
     Dosage: TAKE 3 TABLETS OF 500MG AND 1 TABLET 150 MG TWICE DAILY FOR TWO WEEKS THEN 1 WEEK OFF
     Route: 048
  2. XELODA [Suspect]
     Active Substance: CAPECITABINE
     Dosage: TAKE 1 TABLET BY MOUTH TWICE A DAY ALONG WITH 3 TABS OF 500MG FOR 2 WEEK(S) THEN STOP 1 WEEK
     Route: 048

REACTIONS (4)
  - Cerebral disorder [Unknown]
  - Brain neoplasm malignant [Unknown]
  - Malaise [Unknown]
  - Mental disorder [Unknown]
